FAERS Safety Report 16023823 (Version 3)
Quarter: 2019Q1

REPORT INFORMATION
  Report Type: Report from Study
  Country: US (occurrence: US)
  Receive Date: 20190301
  Receipt Date: 20190318
  Transmission Date: 20190418
  Serious: Yes (Other)
  Sender: FDA-Public Use
  Company Number: US-UCBSA-2017032877

PATIENT
  Age: 31 Year
  Sex: Male

DRUGS (5)
  1. VIMPAT [Suspect]
     Active Substance: LACOSAMIDE
     Indication: EPILEPSY
     Dosage: 50MG 2 PER DAY, 200 MG, 2, TWICE DAILY
  2. TRILEPTAL [Concomitant]
     Active Substance: OXCARBAZEPINE
     Indication: SEIZURE
  3. LEVETIRACETAM. [Suspect]
     Active Substance: LEVETIRACETAM
     Indication: EPILEPSY
     Dosage: 2000 MG
     Dates: start: 20170418, end: 2017
  4. VIMPAT [Suspect]
     Active Substance: LACOSAMIDE
     Dosage: 450 MG, 2X/DAY (BID)
     Dates: start: 20190307
  5. VIMPAT [Suspect]
     Active Substance: LACOSAMIDE
     Dosage: 400 MG, 2X/DAY (BID)

REACTIONS (6)
  - Propionibacterium infection [Unknown]
  - Cerebrovascular accident [Unknown]
  - Postoperative wound infection [Unknown]
  - Off label use [Unknown]
  - Seizure [Unknown]
  - Prescribed overdose [Unknown]

NARRATIVE: CASE EVENT DATE: 20170601
